FAERS Safety Report 13874857 (Version 1)
Quarter: 2017Q3

REPORT INFORMATION
  Report Type: Spontaneous
  Country: US (occurrence: US)
  Receive Date: 20170816
  Receipt Date: 20170816
  Transmission Date: 20171127
  Serious: Yes (Other)
  Sender: FDA-Public Use
  Company Number: US-ROCHE-1251313

PATIENT
  Age: 83 Year

DRUGS (2)
  1. LUCENTIS [Suspect]
     Active Substance: RANIBIZUMAB
     Indication: OFF LABEL USE
  2. LUCENTIS [Suspect]
     Active Substance: RANIBIZUMAB
     Indication: ENDOPHTHALMITIS
     Dosage: 0.05 ML PER INJECTION
     Route: 065
     Dates: start: 20070706, end: 20130711

REACTIONS (1)
  - Non-infectious endophthalmitis [Recovering/Resolving]

NARRATIVE: CASE EVENT DATE: 20130716
